FAERS Safety Report 5202348-X (Version None)
Quarter: 2007Q1

REPORT INFORMATION
  Report Type: 
  Country: None (occurrence: None)
  Receive Date: 20070109
  Receipt Date: 20061113
  Transmission Date: 20070707
  Serious: Yes (Hospitalization)
  Sender: FDA-Public Use
  Company Number: US-MERCK-0701USA00541

PATIENT
  Age: 65 Year
  Sex: Female

DRUGS (2)
  1. COZAAR [Suspect]
     Route: 048
  2. CLOZARIL [Suspect]
     Route: 065
     Dates: start: 20050501

REACTIONS (5)
  - DRUG DISPENSING ERROR [None]
  - HALLUCINATION [None]
  - LETHARGY [None]
  - MEDICATION ERROR [None]
  - MENTAL DISORDER [None]
